FAERS Safety Report 4964778-0 (Version None)
Quarter: 2006Q2

REPORT INFORMATION
  Report Type: 
  Country: None (occurrence: None)
  Receive Date: 20060406
  Receipt Date: 20050928
  Transmission Date: 20061013
  Serious: Yes (Hospitalization, Disabling)
  Sender: FDA-Public Use
  Company Number: US-ROCHE-419582

PATIENT
  Age: 20 Year
  Sex: Male
  Weight: 86.2 kg

DRUGS (1)
  1. ACCUTANE [Suspect]
     Indication: ACNE
     Route: 048
     Dates: start: 19820815, end: 19830415

REACTIONS (21)
  - ANGINA PECTORIS [None]
  - ARTHRALGIA [None]
  - BLOOD CHOLESTEROL INCREASED [None]
  - BLOOD TRIGLYCERIDES INCREASED [None]
  - CALCULUS URETERIC [None]
  - COLITIS [None]
  - COLITIS ULCERATIVE [None]
  - DIVERTICULITIS [None]
  - FLANK PAIN [None]
  - FRACTURE [None]
  - GASTROINTESTINAL DISORDER [None]
  - HYDRONEPHROSIS [None]
  - INFLAMMATORY BOWEL DISEASE [None]
  - INTESTINAL HAEMORRHAGE [None]
  - IRRITABLE BOWEL SYNDROME [None]
  - MULTI-ORGAN DISORDER [None]
  - NEPHROLITHIASIS [None]
  - PELVI-URETERIC OBSTRUCTION [None]
  - PERIRECTAL ABSCESS [None]
  - RECTAL ABSCESS [None]
  - RECTAL FISSURE [None]
